FAERS Safety Report 10006463 (Version 2)
Quarter: 2014Q2

REPORT INFORMATION
  Report Type: Report from Study
  Country: US (occurrence: US)
  Receive Date: 20140313
  Receipt Date: 20140411
  Transmission Date: 20141212
  Serious: Yes (Hospitalization)
  Sender: FDA-Public Use
  Company Number: US-B.I. PHARMACEUTICALS,INC./RIDGEFIELD-2014-BI-10062BI

PATIENT
  Age: 73 Year
  Sex: Male
  Weight: 104.3 kg

DRUGS (21)
  1. DABIGATRAN [Suspect]
     Indication: ATRIAL FIBRILLATION
     Dosage: 300 MG
     Route: 048
     Dates: end: 20130107
  2. DABIGATRAN [Suspect]
     Dosage: 300 MG
     Route: 048
     Dates: end: 20130117
  3. ZETIA [Concomitant]
     Dosage: 10 MG
     Route: 048
  4. METFORMIN HCL [Concomitant]
     Dosage: 500 MG
     Route: 048
  5. ATORVASTATIN CALCIUM [Concomitant]
     Dosage: 40 MG
     Route: 048
  6. ISOSORBIDE MONONITRATE [Concomitant]
     Dosage: 60 MG
     Route: 048
  7. CARVEDILOL [Concomitant]
     Dosage: 12.5 MG
     Route: 048
  8. LISINOPRIL [Concomitant]
     Dosage: 5 MG
     Route: 048
  9. AMLODIPINE BESYLATE [Concomitant]
     Dosage: 5 MG
     Route: 048
  10. AMLODIPINE BESYLATE [Concomitant]
     Dosage: 200 MG
     Route: 048
  11. AMIODARONE HYDROCHLORIDE [Concomitant]
     Dosage: 200 MG
     Route: 048
  12. FUROSEMIDE [Concomitant]
     Dosage: 40 MG
     Route: 048
  13. LEVOTHYROXINE SODIUM [Concomitant]
     Dosage: 112 MEQ
     Route: 048
  14. FLUTICASONE PROPIONATE INHALER [Concomitant]
     Route: 065
  15. ALBUTEROL INHALER [Concomitant]
     Route: 065
  16. PROTONIX [Concomitant]
     Dosage: 80 MG
     Route: 048
     Dates: start: 20130107
  17. VICTOZA [Concomitant]
     Route: 065
  18. LIPITOR [Concomitant]
     Dosage: 40 MG
     Route: 048
  19. LASIX [Concomitant]
     Dosage: 40 MG
     Route: 048
  20. SYNTHROID [Concomitant]
     Dosage: 112 MCG
     Route: 048
  21. ADVIL [Concomitant]
     Indication: ILL-DEFINED DISORDER
     Route: 065

REACTIONS (3)
  - Gastrointestinal haemorrhage [Unknown]
  - Upper gastrointestinal haemorrhage [Unknown]
  - Iron deficiency anaemia [Unknown]
